FAERS Safety Report 24343476 (Version 2)
Quarter: 2024Q3

REPORT INFORMATION
  Report Type: Spontaneous
  Country: GR (occurrence: GR)
  Receive Date: 20240920
  Receipt Date: 20240924
  Transmission Date: 20241016
  Serious: No
  Sender: ORGANON
  Company Number: GR-GlaxoSmithKline-B1015421A

PATIENT
  Age: 34 Year
  Sex: Female

DRUGS (4)
  1. BETAMETHASONE DIPROPIONATE [Suspect]
     Active Substance: BETAMETHASONE DIPROPIONATE
     Indication: Preterm premature rupture of membranes
     Dosage: 12 MG REPEATED DOSE AT 24 HOURS
     Route: 030
  2. AMOXICILLIN [Suspect]
     Active Substance: AMOXICILLIN
     Dosage: UNK, Q8H
     Route: 030
  3. METRONIDAZOLE [Suspect]
     Active Substance: METRONIDAZOLE
     Dosage: UNK, Q8H
     Route: 030
  4. CEFUROXIME [Suspect]
     Active Substance: CEFUROXIME

REACTIONS (1)
  - Exposure during pregnancy [Unknown]
